FAERS Safety Report 5756657-6 (Version None)
Quarter: 2008Q2

REPORT INFORMATION
  Report Type: 
  Country: None (occurrence: None)
  Receive Date: 20080529
  Receipt Date: 20080515
  Transmission Date: 20081010
  Serious: Yes (Hospitalization, Other)
  Sender: FDA-Public Use
  Company Number: SPI200800178

PATIENT
  Age: 50 Year
  Sex: Female
  Weight: 68 kg

DRUGS (10)
  1. AMITIZA [Suspect]
     Indication: IRRITABLE BOWEL SYNDROME
     Dosage: 24 MCG, BID, ORAL
     Route: 048
     Dates: start: 20080303, end: 20080409
  2. AMITIZA [Suspect]
     Indication: IRRITABLE BOWEL SYNDROME
     Dosage: 24 MCG, BID, ORAL
     Route: 048
     Dates: start: 20071201
  3. COUMADIN [Concomitant]
  4. LEVOXYL [Concomitant]
  5. CYTOMEL [Concomitant]
  6. PROTONIX [Concomitant]
  7. ACYCLOVIR [Concomitant]
  8. MULTIVITAMIN [Concomitant]
  9. FISH OIL (FISH OIL) [Concomitant]
  10. GROUND FLAX SEED [Concomitant]

REACTIONS (29)
  - AMNESIA [None]
  - ASTHENIA [None]
  - BLOOD GLUCOSE INCREASED [None]
  - BLOOD UREA INCREASED [None]
  - BRAIN OEDEMA [None]
  - BUNDLE BRANCH BLOCK LEFT [None]
  - CONCUSSION [None]
  - CONSTIPATION [None]
  - DEHYDRATION [None]
  - DIZZINESS [None]
  - ELECTROLYTE IMBALANCE [None]
  - ENCEPHALITIS [None]
  - FALL [None]
  - FATIGUE [None]
  - FEELING ABNORMAL [None]
  - FEELING HOT [None]
  - HAEMORRHAGE [None]
  - HEAD INJURY [None]
  - HEADACHE [None]
  - LOSS OF CONSCIOUSNESS [None]
  - MOVEMENT DISORDER [None]
  - MUSCULOSKELETAL DISCOMFORT [None]
  - NAUSEA [None]
  - NECK PAIN [None]
  - SOMNOLENCE [None]
  - STOMACH DISCOMFORT [None]
  - SYNCOPE [None]
  - VERTIGO [None]
  - WOUND [None]
